FAERS Safety Report 8548155 (Version 3)
Quarter: 2013Q1

REPORT INFORMATION
  Report Type: Spontaneous
  Country: US (occurrence: None)
  Receive Date: 20120427
  Receipt Date: 20130221
  Transmission Date: 20140127
  Serious: Yes (Death)
  Sender: FDA-Public Use
  Company Number: ADR-2012-00763

PATIENT
  Age: 58 Year
  Sex: Male

DRUGS (1)
  1. LIORESAL [Suspect]
     Dosage: 899.9 MCG/DAY

REACTIONS (6)
  - PALLOR [None]
  - Coordination abnormal [None]
  - TACHYCARDIA [None]
  - CONCOMITANT DISEASE AGGRAVATED [None]
  - RESPIRATORY DISORDER [None]
  - CONCOMITANT DISEASE PROGRESSION [None]
